FAERS Safety Report 5068663-8 (Version None)
Quarter: 2006Q3

REPORT INFORMATION
  Report Type: 
  Country: None (occurrence: None)
  Receive Date: 20060802
  Receipt Date: 20060131
  Transmission Date: 20061208
  Serious: No
  Sender: FDA-Public Use
  Company Number: US-BRISTOL-MYERS SQUIBB COMPANY-13265657

PATIENT
  Age: 87 Year
  Sex: Female
  Weight: 73 kg

DRUGS (1)
  1. COUMADIN [Suspect]
     Indication: PROPHYLAXIS
     Dates: start: 20030101

REACTIONS (3)
  - DIZZINESS [None]
  - INTERNATIONAL NORMALISED RATIO FLUCTUATION [None]
  - LETHARGY [None]
